FAERS Safety Report 8125025-4 (Version None)
Quarter: 2012Q1

REPORT INFORMATION
  Report Type: 
  Country: None (occurrence: None)
  Receive Date: 20120209
  Receipt Date: 20120203
  Transmission Date: 20120608
  Serious: Yes (Hospitalization)
  Sender: FDA-Public Use
  Company Number: US-ROCHE-1038295

PATIENT
  Sex: Female
  Weight: 71.732 kg

DRUGS (1)
  1. XELODA [Suspect]
     Indication: BREAST CANCER METASTATIC
     Dosage: 1500MG IN THE MORNING. 2000MG IN THE EVENING
     Dates: start: 20111001, end: 20111201

REACTIONS (4)
  - DEHYDRATION [None]
  - MALNUTRITION [None]
  - DIARRHOEA [None]
  - PALMAR-PLANTAR ERYTHRODYSAESTHESIA SYNDROME [None]
